FAERS Safety Report 9733653 (Version 2)
Quarter: 2013Q4

REPORT INFORMATION
  Report Type: Spontaneous
  Country: DE (occurrence: DE)
  Receive Date: 20131205
  Receipt Date: 20131205
  Transmission Date: 20140711
  Serious: Yes (Disabling)
  Sender: FDA-Public Use
  Company Number: DE-TAKEDA-TPA2013A02906

PATIENT
  Sex: 0

DRUGS (5)
  1. ADENURIC [Suspect]
     Indication: GOUT
     Dosage: 80 MG, QD
     Route: 048
     Dates: start: 20120920, end: 20130411
  2. ADENURIC [Suspect]
     Dosage: UNK
     Route: 048
     Dates: start: 201306
  3. PREDNISOLONE [Suspect]
     Indication: POLYMYALGIA RHEUMATICA
     Route: 065
     Dates: start: 201212, end: 20130411
  4. L-THYROXIN HENNING [Concomitant]
  5. SYMBICORT TURBOHALER PULVER [Concomitant]

REACTIONS (2)
  - Anosmia [Not Recovered/Not Resolved]
  - Ageusia [Not Recovered/Not Resolved]
